FAERS Safety Report 8087376-1 (Version None)
Quarter: 2012Q1

REPORT INFORMATION
  Report Type: 
  Country: None (occurrence: None)
  Receive Date: 20120128
  Receipt Date: 20110509
  Transmission Date: 20120608
  Serious: No
  Sender: FDA-Public Use
  Company Number: US-ABBOTT-11P-163-0724241-00

PATIENT
  Age: 44 Year
  Sex: Female

DRUGS (11)
  1. HUMIRA [Suspect]
     Indication: RHEUMATOID ARTHRITIS
     Dates: start: 20110101
  2. DIGESTIVE ADVANTAGE [Concomitant]
     Indication: CONSTIPATION
  3. VITAMIN D [Concomitant]
     Indication: PRODUCT USED FOR UNKNOWN INDICATION
  4. LASIX [Concomitant]
     Indication: FLUID RETENTION
  5. CITRACAL PETITES [Concomitant]
     Indication: MEDICAL DIET
  6. IRON [Concomitant]
     Indication: MINERAL SUPPLEMENTATION
     Dosage: 45 MG, 1 IN 1 DAY, PILL
  7. RESTATSIS EYE DROPS [Concomitant]
     Indication: SJOGREN'S SYNDROME
  8. AMITIZA [Concomitant]
     Indication: CONSTIPATION
  9. VITAMIN B-12 [Concomitant]
     Indication: VITAMIN SUPPLEMENTATION
  10. PLAQUENIL [Concomitant]
     Indication: SJOGREN'S SYNDROME
  11. COQ10 VITAMIN [Concomitant]
     Indication: VITAMIN SUPPLEMENTATION

REACTIONS (4)
  - INCORRECT DOSE ADMINISTERED [None]
  - INJECTION SITE HAEMORRHAGE [None]
  - INJECTION SITE PAIN [None]
  - DEVICE MALFUNCTION [None]
